FAERS Safety Report 5749498-7 (Version None)
Quarter: 2008Q2

REPORT INFORMATION
  Report Type: 
  Country: None (occurrence: None)
  Receive Date: 20080527
  Receipt Date: 20080513
  Transmission Date: 20081010
  Serious: Yes (Other)
  Sender: FDA-Public Use
  Company Number: B0520282A

PATIENT
  Sex: Male
  Weight: 1.3 kg

DRUGS (4)
  1. LAMIVUDINE [Suspect]
  2. REYATAZ [Suspect]
  3. RITONAVIR [Suspect]
  4. NEVIRAPINE [Suspect]

REACTIONS (2)
  - DRUG EXPOSURE DURING PREGNANCY [None]
  - PREMATURE BABY [None]
